FAERS Safety Report 4778685-X (Version None)
Quarter: 2005Q3

REPORT INFORMATION
  Report Type: 
  Country: None (occurrence: None)
  Receive Date: 20050922
  Receipt Date: 20050907
  Transmission Date: 20060218
  Serious: Yes (Disabling)
  Sender: FDA-Public Use
  Company Number: 32443

PATIENT
  Age: 52 Year
  Sex: Female

DRUGS (2)
  1. TOBRADEX [Suspect]
     Indication: KERATITIS
     Dosage: 6 GTTS QD OPHT
     Route: 047
     Dates: start: 19961225
  2. TRIAMTERENUM [Concomitant]

REACTIONS (4)
  - CATARACT [None]
  - IMPAIRED WORK ABILITY [None]
  - PHOTOPSIA [None]
  - VITREOUS FLOATERS [None]
